FAERS Safety Report 15743598 (Version 3)
Quarter: 2019Q2

REPORT INFORMATION
  Report Type: Spontaneous
  Country: US (occurrence: US)
  Receive Date: 20181220
  Receipt Date: 20190523
  Transmission Date: 20190711
  Serious: Yes (Hospitalization)
  Sender: FDA-Public Use
  Company Number: US-PFIZER INC-2018519373

PATIENT
  Age: 71 Year
  Sex: Female

DRUGS (6)
  1. ADVIL [IBUPROFEN] [Concomitant]
     Active Substance: IBUPROFEN
     Dosage: UNK [200]
  2. CINNAMON. [Concomitant]
     Active Substance: CINNAMON
     Dosage: UNK
  3. GINGER [ZINGIBER OFFICINALE RHIZOME] [Concomitant]
     Dosage: UNK
  4. TURMERIC [CURCUMA LONGA RHIZOME] [Concomitant]
     Active Substance: HERBALS\TURMERIC
     Dosage: UNK
  5. XELJANZ XR [Suspect]
     Active Substance: TOFACITINIB CITRATE
     Indication: RHEUMATOID ARTHRITIS
     Dosage: 11 MG, 1X/DAY
     Dates: start: 201409
  6. XELJANZ [Suspect]
     Active Substance: TOFACITINIB CITRATE
     Indication: RHEUMATOID ARTHRITIS
     Dosage: 5 UNK, 2X/DAY
     Dates: start: 201409

REACTIONS (3)
  - Ocular discomfort [Recovered/Resolved]
  - Gingival disorder [Not Recovered/Not Resolved]
  - Pollakiuria [Not Recovered/Not Resolved]
